FAERS Safety Report 6089366-7 (Version None)
Quarter: 2009Q1

REPORT INFORMATION
  Report Type: 
  Country: None (occurrence: None)
  Receive Date: 20090224
  Receipt Date: 20090220
  Transmission Date: 20090719
  Serious: Yes (Death)
  Sender: FDA-Public Use
  Company Number: IN-ELI_LILLY_AND_COMPANY-IN200902005063

PATIENT
  Sex: Female

DRUGS (5)
  1. GEMCITABINE HCL [Suspect]
     Indication: BREAST CANCER METASTATIC
     Route: 042
  2. ADRIAMYCIN PFS [Concomitant]
  3. TAXOL [Concomitant]
  4. HERCEPTIN [Concomitant]
  5. MULTI-VITAMIN [Concomitant]

REACTIONS (1)
  - DEATH [None]
